FAERS Safety Report 23146180 (Version 1)
Quarter: 2023Q4

REPORT INFORMATION
  Report Type: Spontaneous
  Country: BE (occurrence: BE)
  Receive Date: 20231104
  Receipt Date: 20231104
  Transmission Date: 20240109
  Serious: Yes (Life-Threatening, Other)
  Sender: FDA-Public Use
  Company Number: BE-FAMHP-DHH-N2023-121061

PATIENT
  Sex: Male
  Weight: 67 kg

DRUGS (4)
  1. AMIODARONE [Suspect]
     Active Substance: AMIODARONE
     Indication: Heart rate abnormal
     Dosage: 200 MILLIGRAM, ONCE A DAY (1 TABLET TIJDENS HET ETEN)
     Route: 048
     Dates: start: 201910, end: 20220307
  2. CLOPIDOGREL [Suspect]
     Active Substance: CLOPIDOGREL BISULFATE
     Indication: Coagulopathy
     Dosage: 75 MILLIGRAM, ONCE A DAY (1 PER DAG)
     Route: 048
     Dates: start: 20191114, end: 20220720
  3. EZETIMIBE\SIMVASTATIN [Suspect]
     Active Substance: EZETIMIBE\SIMVASTATIN
     Indication: Low density lipoprotein increased
     Dosage: 1 DOSAGE FORM, ONCE A DAY
     Route: 048
     Dates: start: 20191114, end: 20211020
  4. LEVOTHYROXINE [Suspect]
     Active Substance: LEVOTHYROXINE
     Indication: Thyroid disorder
     Dosage: 50 MICROGRAM, ONCE A DAY (1 /DAG 30^ VOOR HET ETEN)
     Route: 048
     Dates: start: 20210707, end: 20220520

REACTIONS (11)
  - Liver injury [Recovering/Resolving]
  - Visual impairment [Recovering/Resolving]
  - Heart rate decreased [Recovering/Resolving]
  - Muscle spasms [Recovering/Resolving]
  - Dyspnoea [Recovering/Resolving]
  - Poor quality sleep [Recovering/Resolving]
  - Feeling abnormal [Recovering/Resolving]
  - Fatigue [Recovering/Resolving]
  - Vomiting [Recovering/Resolving]
  - Thyroid disorder [Recovering/Resolving]
  - Device power source issue [Recovering/Resolving]
